FAERS Safety Report 17545365 (Version 2)
Quarter: 2020Q2

REPORT INFORMATION
  Report Type: Spontaneous
  Country: FR (occurrence: FR)
  Receive Date: 20200316
  Receipt Date: 20200408
  Transmission Date: 20200713
  Serious: Yes (Other)
  Sender: FDA-Public Use
  Company Number: FR-ABBVIE-20K-056-3246410-00

PATIENT
  Age: 26 Year
  Sex: Female

DRUGS (5)
  1. HUMIRA [Suspect]
     Active Substance: ADALIMUMAB
     Indication: CROHN^S DISEASE
     Route: 058
     Dates: start: 201807, end: 2018
  2. SIMPONI [Concomitant]
     Active Substance: GOLIMUMAB
     Indication: PRODUCT USED FOR UNKNOWN INDICATION
  3. HUMIRA [Suspect]
     Active Substance: ADALIMUMAB
     Dosage: WEEK 2
     Route: 058
     Dates: start: 2018, end: 2018
  4. HUMIRA [Suspect]
     Active Substance: ADALIMUMAB
     Dosage: WEEK 4
     Route: 058
     Dates: start: 2018
  5. HUMIRA [Suspect]
     Active Substance: ADALIMUMAB
     Dosage: WEEK 4
     Route: 058
     Dates: start: 201912

REACTIONS (4)
  - Skin injury [Unknown]
  - Lupus-like syndrome [Unknown]
  - Oedema peripheral [Unknown]
  - Arthralgia [Unknown]

NARRATIVE: CASE EVENT DATE: 202001
